FAERS Safety Report 7325177-X (Version None)
Quarter: 2011Q1

REPORT INFORMATION
  Report Type: 
  Country: None (occurrence: None)
  Receive Date: 20110302
  Receipt Date: 20110215
  Transmission Date: 20110831
  Serious: Yes (Death, Other)
  Sender: FDA-Public Use
  Company Number: US-CELGENEUS-163-21880-10070682

PATIENT

DRUGS (2)
  1. REVLIMID [Suspect]
     Dosage: 50 MILLIGRAM
     Route: 048
  2. REVLIMID [Suspect]
     Dosage: 10 MILLIGRAM
     Route: 048

REACTIONS (18)
  - MUCOSAL INFLAMMATION [None]
  - HYPONATRAEMIA [None]
  - TRANSAMINASES INCREASED [None]
  - LEUKOPENIA [None]
  - NEUTROPENIC INFECTION [None]
  - ACUTE MYELOID LEUKAEMIA [None]
  - PNEUMONIA [None]
  - RASH [None]
  - NEUTROPENIA [None]
  - BACTERAEMIA [None]
  - FEBRILE NEUTROPENIA [None]
  - INFECTION [None]
  - HYPOXIA [None]
  - BLOOD BILIRUBIN INCREASED [None]
  - HAEMORRHAGE [None]
  - THROMBOCYTOPENIA [None]
  - ANAEMIA [None]
  - FATIGUE [None]
